FAERS Safety Report 6470117-9 (Version None)
Quarter: 2009Q4

REPORT INFORMATION
  Report Type: 
  Country: None (occurrence: None)
  Receive Date: 20091203
  Receipt Date: 20091123
  Transmission Date: 20100525
  Serious: Yes (Hospitalization)
  Sender: FDA-Public Use
  Company Number: US-ABBOTT-09P-163-0589591-00

PATIENT
  Sex: Female
  Weight: 59.02 kg

DRUGS (13)
  1. HUMIRA [Suspect]
     Indication: RHEUMATOID ARTHRITIS
     Route: 058
     Dates: start: 20070701
  2. HUMIRA [Suspect]
     Route: 058
     Dates: start: 20090901, end: 20091001
  3. PREDNISONE [Suspect]
     Indication: RHEUMATOID ARTHRITIS
     Dates: end: 20090701
  4. CYMBALTA [Concomitant]
     Indication: DEPRESSION
  5. CYMBALTA [Concomitant]
     Indication: FIBROMYALGIA
  6. LYRICA [Concomitant]
     Indication: RHEUMATOID ARTHRITIS
  7. SEROQUEL [Concomitant]
     Indication: DEPRESSION
     Dates: start: 20090803
  8. OXYCODONE HCL [Concomitant]
     Indication: ARTHRALGIA
  9. OXYCODONE HCL [Concomitant]
  10. METHOTREXATE [Concomitant]
     Indication: RHEUMATOID ARTHRITIS
     Route: 058
     Dates: start: 20070701, end: 20091001
  11. METOPROLOL [Concomitant]
     Indication: HYPERTENSION
  12. ALBUTEROL [Concomitant]
     Indication: PNEUMONIA
  13. ALBUTEROL [Concomitant]
     Indication: ASTHMA

REACTIONS (19)
  - ANGER [None]
  - APNOEA [None]
  - CARDIAC ARREST [None]
  - DYSPNOEA [None]
  - IMMUNE SYSTEM DISORDER [None]
  - LOSS OF CONSCIOUSNESS [None]
  - LUNG DISORDER [None]
  - MALAISE [None]
  - PAIN [None]
  - PNEUMONIA [None]
  - PNEUMONIA ASPIRATION [None]
  - PULMONARY FIBROSIS [None]
  - PULMONARY OEDEMA [None]
  - RESPIRATORY FAILURE [None]
  - RHEUMATOID ARTHRITIS [None]
  - SWELLING [None]
  - VITAMIN D DECREASED [None]
  - WEIGHT INCREASED [None]
  - WHITE BLOOD CELL COUNT DECREASED [None]
